FAERS Safety Report 16050153 (Version 1)
Quarter: 2019Q1

REPORT INFORMATION
  Report Type: Spontaneous
  Country: US (occurrence: US)
  Receive Date: 20190308
  Receipt Date: 20190308
  Transmission Date: 20190418
  Serious: No
  Sender: FDA-Public Use
  Company Number: US-ASTRAZENECA-2019SE23574

PATIENT
  Age: 820 Month
  Sex: Female
  Weight: 92.5 kg

DRUGS (1)
  1. BYDUREON BCISE [Suspect]
     Active Substance: EXENATIDE
     Indication: BLOOD GLUCOSE ABNORMAL
     Route: 058
     Dates: start: 201811

REACTIONS (2)
  - Injection site nodule [Not Recovered/Not Resolved]
  - Needle track marks [Unknown]

NARRATIVE: CASE EVENT DATE: 201811
